FAERS Safety Report 7490199-5 (Version None)
Quarter: 2011Q2

REPORT INFORMATION
  Report Type: 
  Country: None (occurrence: None)
  Receive Date: 20110519
  Receipt Date: 20110512
  Transmission Date: 20111010
  Serious: Yes (Hospitalization)
  Sender: FDA-Public Use
  Company Number: US-SP-2011-02047

PATIENT
  Sex: Male

DRUGS (7)
  1. COREG CR [Concomitant]
     Indication: HYPERTENSION
  2. TORSEMIDE [Concomitant]
     Indication: DIURETIC THERAPY
  3. TUBERSOL [Suspect]
     Indication: TUBERCULIN TEST
     Route: 023
     Dates: start: 20110404, end: 20110404
  4. ANTIHISTAMINE [Concomitant]
     Indication: RHINITIS SEASONAL
  5. DIOVAN [Concomitant]
  6. HYDRALAZINE HCL [Concomitant]
  7. BENICAR [Concomitant]

REACTIONS (13)
  - HYPERSENSITIVITY [None]
  - CHEST PAIN [None]
  - BLOOD PRESSURE INCREASED [None]
  - HYPERTENSIVE CRISIS [None]
  - DYSPHONIA [None]
  - CHILLS [None]
  - TREMOR [None]
  - HEADACHE [None]
  - ANGIOEDEMA [None]
  - FEELING ABNORMAL [None]
  - RENAL FAILURE [None]
  - PRURITUS [None]
  - DYSPNOEA [None]
